FAERS Safety Report 7060037-3 (Version None)
Quarter: 2010Q4

REPORT INFORMATION
  Report Type: 
  Country: None (occurrence: None)
  Receive Date: 20101025
  Receipt Date: 20091127
  Transmission Date: 20110411
  Serious: No
  Sender: FDA-Public Use
  Company Number: US-BRISTOL-MYERS SQUIBB COMPANY-14877344

PATIENT
  Sex: Male

DRUGS (1)
  1. BUSPAR [Suspect]
     Indication: ANXIETY DISORDER

REACTIONS (2)
  - NAUSEA [None]
  - SEDATION [None]
